FAERS Safety Report 7776260-6 (Version None)
Quarter: 2011Q3

REPORT INFORMATION
  Report Type: 
  Country: None (occurrence: None)
  Receive Date: 20110921
  Receipt Date: 20110906
  Transmission Date: 20111222
  Serious: Yes (Hospitalization)
  Sender: FDA-Public Use
  Company Number: JP-2011-10940

PATIENT
  Age: 86 Year
  Sex: Female
  Weight: 39 kg

DRUGS (5)
  1. ATELEC (CILNIDIPINE) TABLET [Concomitant]
  2. MICOMBI (TELMISARTAN_HYDROCHLOROTHIAZIDE COMBINED DRUG) TABLET [Concomitant]
  3. RABEPRAZOLE SODIUM [Concomitant]
  4. NOVORAPID 30 MIX (INSULIN ASPART(GENETICAL RECOMBINATION)) INJECTION [Concomitant]
  5. CILOSTAZOL [Suspect]
     Indication: ARTERIOSCLEROSIS OBLITERANS
     Dosage: 100 MG MILLIGRAM(S), BID,  ORAL
     Route: 048
     Dates: start: 20110114

REACTIONS (5)
  - CARDIAC FAILURE [None]
  - TRICUSPID VALVE INCOMPETENCE [None]
  - ATRIAL TACHYCARDIA [None]
  - SKIN ULCER [None]
  - GANGRENE [None]
